FAERS Safety Report 9482191 (Version 1)
Quarter: 2013Q3

REPORT INFORMATION
  Report Type: Other
  Country: FR (occurrence: FR)
  Receive Date: 20130828
  Receipt Date: 20130828
  Transmission Date: 20140515
  Serious: Yes (Life-Threatening, Other)
  Sender: FDA-Public Use
  Company Number: FR-MPIJNJ-2013JNJ000082

PATIENT
  Sex: 0

DRUGS (15)
  1. VELCADE [Suspect]
     Indication: PRODUCT USED FOR UNKNOWN INDICATION
     Dosage: 1.3 MG, UNK
     Route: 065
     Dates: start: 20121105
  2. BENDAMUSTINE [Suspect]
     Indication: PRODUCT USED FOR UNKNOWN INDICATION
     Dosage: 210 MG, UNK
     Route: 065
     Dates: start: 20121111
  3. ROCEPHINE /00672201/ [Suspect]
     Indication: URINARY TRACT INFECTION
     Dosage: 1 G, UNK
     Route: 042
     Dates: start: 20121203, end: 20121211
  4. ZYLORIC [Suspect]
     Indication: HYPOURICAEMIA
     Dosage: 100 MG, UNK
     Route: 048
     Dates: start: 20121120
  5. ZELITREX [Suspect]
     Indication: HERPES ZOSTER
     Dosage: 1 G, UNK
     Route: 048
     Dates: start: 20121129, end: 20121205
  6. ZELITREX [Suspect]
     Dosage: 500 MG, UNK
     Route: 048
     Dates: start: 20121206
  7. ZELITREX [Suspect]
     Dosage: 500 MG, UNK
     Route: 065
     Dates: start: 20121211
  8. CLAMOXYL [Suspect]
     Indication: URINARY TRACT INFECTION
     Dosage: UNK
     Route: 048
     Dates: start: 20121124, end: 20121203
  9. CARDENSIEL [Concomitant]
     Dosage: 1.25 MG, UNK
  10. DOLIPRANE [Concomitant]
     Dosage: 1 G, UNK
  11. INEXIUM                            /01479302/ [Concomitant]
     Dosage: 20 MG, UNK
  12. KARDEGIC                           /00002703/ [Concomitant]
     Dosage: 75 MG, UNK
  13. LOXEN [Concomitant]
     Dosage: 20 MG, UNK
  14. TAHOR [Concomitant]
     Dosage: 10 MG, UNK
  15. LYRICA [Concomitant]
     Dosage: 25 MG, UNK

REACTIONS (1)
  - Haemolytic anaemia [Unknown]
